FAERS Safety Report 20763629 (Version 1)
Quarter: 2022Q2

REPORT INFORMATION
  Report Type: Spontaneous
  Country: US (occurrence: US)
  Receive Date: 20220428
  Receipt Date: 20220428
  Transmission Date: 20220721
  Serious: No
  Sender: FDA-Public Use
  Company Number: US-PFIZER INC-202101883556

PATIENT
  Age: 69 Year
  Sex: Male

DRUGS (9)
  1. XELJANZ XR [Suspect]
     Active Substance: TOFACITINIB CITRATE
     Dosage: 11 MG, DAILY
     Route: 048
     Dates: start: 20210629
  2. CALCIUM CARBONATE [Concomitant]
     Active Substance: CALCIUM CARBONATE
  3. CHILDREN^S CETIRIZINE HYDROCHLORIDE [Concomitant]
  4. MODERNA COVID-19 VACCINE [Concomitant]
     Active Substance: ELASOMERAN
  5. VITAMIN D3 [Concomitant]
     Active Substance: CHOLECALCIFEROL
  6. VITAMIN B12 [Concomitant]
     Active Substance: CYANOCOBALAMIN
  7. FISH OIL [Concomitant]
     Active Substance: FISH OIL
  8. OCUVITE [ASCORBIC ACID;RETINOL;TOCOPHEROL] [Concomitant]
  9. FISH OIL [Concomitant]
     Active Substance: FISH OIL

REACTIONS (1)
  - Hand deformity [Not Recovered/Not Resolved]

NARRATIVE: CASE EVENT DATE: 20210101
